FAERS Safety Report 6234716-1 (Version None)
Quarter: 2009Q2

REPORT INFORMATION
  Report Type: 
  Country: None (occurrence: None)
  Receive Date: 20090616
  Receipt Date: 20090616
  Transmission Date: 20091009
  Serious: No
  Sender: FDA-Public Use
  Company Number: None

PATIENT
  Age: 59 Year
  Sex: Male
  Weight: 81.6475 kg

DRUGS (2)
  1. CRESTOR [Suspect]
     Indication: BLOOD CHOLESTEROL INCREASED
     Dosage: 5 MG. 1/DAY PO
     Route: 048
     Dates: start: 20060910, end: 20061210
  2. VYTORIN [Suspect]
     Indication: BLOOD CHOLESTEROL INCREASED
     Dosage: 10/40  1/DAY PO
     Route: 048
     Dates: start: 20070114, end: 20070504

REACTIONS (24)
  - ARTHRALGIA [None]
  - DISTURBANCE IN ATTENTION [None]
  - EYE IRRITATION [None]
  - FEAR [None]
  - GAIT DISTURBANCE [None]
  - HANGOVER [None]
  - HEADACHE [None]
  - HYPERACUSIS [None]
  - INSOMNIA [None]
  - IRRITABILITY [None]
  - MEMORY IMPAIRMENT [None]
  - MENTAL DISORDER [None]
  - MUSCLE INJURY [None]
  - MYOPATHY [None]
  - NERVE INJURY [None]
  - NERVOUSNESS [None]
  - NEUROPATHY PERIPHERAL [None]
  - OSTEITIS DEFORMANS [None]
  - PRURITUS [None]
  - RENAL FAILURE [None]
  - RENAL IMPAIRMENT [None]
  - TINNITUS [None]
  - URINE CALCIUM INCREASED [None]
  - VITAMIN D DEFICIENCY [None]
